FAERS Safety Report 13872506 (Version 1)
Quarter: 2017Q3

REPORT INFORMATION
  Report Type: Report from Study
  Country: DE (occurrence: DE)
  Receive Date: 20170816
  Receipt Date: 20170816
  Transmission Date: 20171127
  Serious: Yes (Congenital Anomaly, Other)
  Sender: FDA-Public Use
  Company Number: DE-MYLANLABS-2017M1050240

PATIENT

DRUGS (5)
  1. METHYLDOPA. [Suspect]
     Active Substance: METHYLDOPA
     Indication: HYPERTENSION
     Dosage: 250MG/DAY
     Route: 064
  2. ESTRADIOL. [Concomitant]
     Active Substance: ESTRADIOL
     Indication: ABORTION SPONTANEOUS
     Dosage: RECEIVED FROM 0-12 WEEK OF GESTATION
     Route: 064
  3. PROGESTERONE. [Concomitant]
     Active Substance: PROGESTERONE
     Indication: ABORTION SPONTANEOUS
     Dosage: RECEIVED FROM 0-12 WEEK OF GESTATION
     Route: 064
  4. OMEPRAZOLE. [Concomitant]
     Active Substance: OMEPRAZOLE
     Indication: GASTROOESOPHAGEAL REFLUX DISEASE
     Dosage: RECEIVED FROM 5-38+6 WEEK OF GESTATION
     Route: 064
  5. INSULIN [Concomitant]
     Active Substance: INSULIN NOS
     Indication: DIABETES MELLITUS
     Dosage: RECEIVED FROM 5-38+6 WEEK OF GESTATION
     Route: 064

REACTIONS (3)
  - Ventricular septal defect [Unknown]
  - Foetal exposure during pregnancy [Unknown]
  - Macrocephaly [Unknown]
